FAERS Safety Report 8257665-6 (Version None)
Quarter: 2012Q2

REPORT INFORMATION
  Report Type: 
  Country: None (occurrence: None)
  Receive Date: 20120403
  Receipt Date: 20120322
  Transmission Date: 20120825
  Serious: Yes (Congenital Anomaly, Other)
  Sender: FDA-Public Use
  Company Number: US-RB-037997-12

PATIENT
  Sex: Male

DRUGS (8)
  1. HUMULIN PEN [Suspect]
     Indication: PRODUCT USED FOR UNKNOWN INDICATION
     Dosage: UNKNOWN DOSE
     Route: 064
  2. ZOLPIDEM [Suspect]
     Indication: PRODUCT USED FOR UNKNOWN INDICATION
     Route: 064
  3. LAMICTAL [Suspect]
     Indication: DEPRESSION
  4. SUBUTEX [Suspect]
     Indication: DRUG DEPENDENCE
     Route: 064
     Dates: end: 20120228
  5. ONDANSETRON [Suspect]
     Indication: NAUSEA
  6. SUBUTEX [Suspect]
     Dosage: UNKNOWN DOSAGE DETAILS
     Route: 063
     Dates: start: 20120101
  7. NEEVO DHA [Suspect]
     Indication: PREGNANCY
     Route: 064
  8. HUMALOG [Suspect]
     Indication: PRODUCT USED FOR UNKNOWN INDICATION
     Dosage: UNKNOWN DOSE
     Route: 064

REACTIONS (3)
  - EXPOSURE DURING BREAST FEEDING [None]
  - FOETAL EXPOSURE DURING PREGNANCY [None]
  - CONGENITAL HEPATOBILIARY ANOMALY [None]
